FAERS Safety Report 15279760 (Version 1)
Quarter: 2018Q3

REPORT INFORMATION
  Report Type: Spontaneous
  Country: US (occurrence: US)
  Receive Date: 20180730
  Receipt Date: 20180730
  Transmission Date: 20181010
  Serious: Yes (Hospitalization)
  Sender: FDA-Public Use
  Company Number: None

PATIENT
  Age: 61 Year
  Sex: Male

DRUGS (1)
  1. IXAZOMIB [Suspect]
     Active Substance: IXAZOMIB
     Indication: PLASMA CELL MYELOMA
     Dates: start: 20180629, end: 20180705

REACTIONS (9)
  - Nightmare [None]
  - Hallucination [None]
  - Pneumonia [None]
  - Encephalopathy [None]
  - Dysstasia [None]
  - Amnesia [None]
  - Aggression [None]
  - Fall [None]
  - Irritability [None]

NARRATIVE: CASE EVENT DATE: 20180705
